FAERS Safety Report 7311510-1 (Version None)
Quarter: 2011Q1

REPORT INFORMATION
  Report Type: 
  Country: None (occurrence: None)
  Receive Date: 20110216
  Receipt Date: 20110216
  Transmission Date: 20110831
  Serious: Yes (Other)
  Sender: FDA-Public Use
  Company Number: None

PATIENT
  Sex: Male
  Weight: 83.9154 kg

DRUGS (10)
  1. SULFATE [Concomitant]
  2. ESOMEPRAZOLE [Concomitant]
  3. ASCORBIC ACID [Concomitant]
  4. HEPARIN [Concomitant]
  5. INVEGA SUSTENNA [Suspect]
     Indication: SCHIZOPHRENIFORM DISORDER
     Dosage: 234 MG ONCE IM
     Route: 030
     Dates: start: 20110214, end: 20110214
  6. DOXAZOSIN [Concomitant]
  7. HYDROXYZINE [Concomitant]
  8. MYLANTA [Concomitant]
  9. DOCUSATE [Concomitant]
  10. MULTI-VITAMIN [Concomitant]

REACTIONS (3)
  - FLUSHING [None]
  - CHILLS [None]
  - TACHYCARDIA [None]
